FAERS Safety Report 10442631 (Version 1)
Quarter: 2014Q3

REPORT INFORMATION
  Report Type: Spontaneous
  Country: DE (occurrence: None)
  Receive Date: 20140908
  Receipt Date: 20140908
  Transmission Date: 20150326
  Serious: Yes (Other)
  Sender: FDA-Public Use
  Company Number: 7317276

PATIENT
  Age: 54 Year
  Sex: Female

DRUGS (1)
  1. EUTHYROX (LEVOTHYROXINE SODIUM) (LEVOTHYROXINE SODIUM) [Suspect]
     Active Substance: LEVOTHYROXINE SODIUM
     Indication: THYROIDECTOMY
     Route: 048
     Dates: start: 201401

REACTIONS (7)
  - Palpitations [None]
  - Cystitis noninfective [None]
  - Fungal infection [None]
  - Umbilical hernia [None]
  - Hyperchlorhydria [None]
  - Tongue disorder [None]
  - Heart rate increased [None]

NARRATIVE: CASE EVENT DATE: 201403
